FAERS Safety Report 24539754 (Version 2)
Quarter: 2024Q4

REPORT INFORMATION
  Report Type: Spontaneous
  Country: US (occurrence: US)
  Receive Date: 20241023
  Receipt Date: 20241028
  Transmission Date: 20250114
  Serious: Yes (Other)
  Sender: PFIZER
  Company Number: US-MLMSERVICE-20241010-PI223159-00128-1

PATIENT
  Age: 57 Year
  Sex: Male

DRUGS (12)
  1. METHOTREXATE SODIUM [Suspect]
     Active Substance: METHOTREXATE SODIUM
     Indication: Plasmablastic lymphoma
     Dosage: 2 TREATMENTS
     Route: 037
  2. METHOTREXATE SODIUM [Suspect]
     Active Substance: METHOTREXATE SODIUM
     Indication: Nasal sinus cancer
  3. DOXORUBICIN HYDROCHLORIDE [Suspect]
     Active Substance: DOXORUBICIN HYDROCHLORIDE
     Indication: Plasmablastic lymphoma
     Dosage: DOSE-ADJUSTED, 6 CYCLES
  4. DOXORUBICIN HYDROCHLORIDE [Suspect]
     Active Substance: DOXORUBICIN HYDROCHLORIDE
     Indication: Nasal sinus cancer
  5. VINCRISTINE SULFATE [Suspect]
     Active Substance: VINCRISTINE SULFATE
     Indication: Plasmablastic lymphoma
     Dosage: DOSE-ADJUSTED, 6 CYCLES
  6. VINCRISTINE SULFATE [Suspect]
     Active Substance: VINCRISTINE SULFATE
     Indication: Nasal sinus cancer
  7. ETOPOSIDE [Suspect]
     Active Substance: ETOPOSIDE
     Indication: Plasmablastic lymphoma
     Dosage: DOSE-ADJUSTED, 6 CYCLES
  8. ETOPOSIDE [Suspect]
     Active Substance: ETOPOSIDE
     Indication: Nasal sinus cancer
  9. PREDNISONE [Suspect]
     Active Substance: PREDNISONE
     Indication: Plasmablastic lymphoma
     Dosage: DOSE-ADJUSTED, 6 CYCLES
  10. PREDNISONE [Suspect]
     Active Substance: PREDNISONE
     Indication: Nasal sinus cancer
  11. CYCLOPHOSPHAMIDE [Suspect]
     Active Substance: CYCLOPHOSPHAMIDE
     Indication: Plasmablastic lymphoma
     Dosage: DOSE-ADJUSTED, 6 CYCLES
  12. CYCLOPHOSPHAMIDE [Suspect]
     Active Substance: CYCLOPHOSPHAMIDE
     Indication: Nasal sinus cancer

REACTIONS (1)
  - Neuropathy peripheral [Unknown]
